FAERS Safety Report 8761820 (Version 2)
Quarter: 2012Q4

REPORT INFORMATION
  Report Type: Spontaneous
  Country: AU (occurrence: None)
  Receive Date: 20120823
  Receipt Date: 20120830
  Transmission Date: 20130627
  Serious: Yes (Death, Hospitalization)
  Sender: FDA-Public Use
  Company Number: 2012AP002390

PATIENT
  Age: 69 Year
  Sex: Female

DRUGS (4)
  1. APO-CARVEDILOL [Suspect]
     Indication: CARDIAC DISORDER
     Route: 048
     Dates: start: 20120728, end: 20120730
  2. PRAVACHOL (PRAVASTATIN SODIUM) [Concomitant]
  3. CLOPIDOGREL (CLOPIDOGREL) [Concomitant]
  4. SIGMAXIN (DIGOXIN) [Concomitant]

REACTIONS (4)
  - Convulsion [None]
  - Cardiac failure [None]
  - Medication error [None]
  - Drug dispensing error [None]
